FAERS Safety Report 16237477 (Version 2)
Quarter: 2019Q2

REPORT INFORMATION
  Report Type: Spontaneous
  Country: US (occurrence: US)
  Receive Date: 20190425
  Receipt Date: 20190515
  Transmission Date: 20190711
  Serious: No
  Sender: FDA-Public Use
  Company Number: US-EMD SERONO-9086977

PATIENT
  Age: 64 Year
  Sex: Female

DRUGS (2)
  1. REBIF [Suspect]
     Active Substance: INTERFERON BETA-1A
     Indication: MULTIPLE SCLEROSIS
     Route: 058
     Dates: start: 20060824
  2. REBIF [Suspect]
     Active Substance: INTERFERON BETA-1A
     Route: 058
     Dates: start: 20080809

REACTIONS (5)
  - Skin laceration [Unknown]
  - Needle fatigue [Unknown]
  - Herpes zoster [Unknown]
  - Injection site bruising [Not Recovered/Not Resolved]
  - Wheelchair user [Unknown]

NARRATIVE: CASE EVENT DATE: 201904
